FAERS Safety Report 17299221 (Version 1)
Quarter: 2020Q1

REPORT INFORMATION
  Report Type: Spontaneous
  Country: GB (occurrence: GB)
  Receive Date: 20200122
  Receipt Date: 20200122
  Transmission Date: 20200409
  Serious: Yes (Other)
  Sender: FDA-Public Use
  Company Number: GB-MYLANLABS-2020M1005105

PATIENT
  Age: 56 Year
  Sex: Female
  Weight: 98 kg

DRUGS (2)
  1. LANSOPRAZOLE. [Concomitant]
     Active Substance: LANSOPRAZOLE
     Dosage: UNK
  2. CIPROFLOXACIN. [Suspect]
     Active Substance: CIPROFLOXACIN
     Indication: SINUSITIS
     Dosage: 1000 MILLIGRAM, QD
     Route: 048
     Dates: start: 20190807

REACTIONS (6)
  - Petechiae [Recovered/Resolved]
  - Flat affect [Recovered/Resolved]
  - Obsessive-compulsive symptom [Recovered/Resolved]
  - Suicidal behaviour [Recovered/Resolved]
  - Drug ineffective [Unknown]
  - Suicidal ideation [Recovered/Resolved]

NARRATIVE: CASE EVENT DATE: 20190810
